FAERS Safety Report 15393046 (Version 1)
Quarter: 2018Q3

REPORT INFORMATION
  Report Type: Spontaneous
  Country: JP (occurrence: JP)
  Receive Date: 20180917
  Receipt Date: 20180917
  Transmission Date: 20181010
  Serious: Yes (Hospitalization, Other)
  Sender: FDA-Public Use
  Company Number: JP-PFIZER INC-2018077727

PATIENT
  Age: 65 Year
  Sex: Male

DRUGS (5)
  1. LOXONIN [Suspect]
     Active Substance: LOXOPROFEN SODIUM
     Dosage: UNK UNK, 3X/DAY
     Dates: end: 20180222
  2. LYRICA [Suspect]
     Active Substance: PREGABALIN
     Dosage: 75 MG, 1X/DAY
     Route: 048
     Dates: start: 20180219, end: 20180222
  3. MUCOSTA [Concomitant]
     Active Substance: REBAMIPIDE
     Dosage: UNK UNK, 3X/DAY
     Dates: end: 20180222
  4. LIDOCAINE. [Concomitant]
     Active Substance: LIDOCAINE
     Dosage: 8 UNK, UNK
  5. LINOLOSAL [Concomitant]
     Active Substance: BETAMETHASONE SODIUM PHOSPHATE
     Dosage: 4 MG, UNK

REACTIONS (4)
  - Chromaturia [Unknown]
  - Pyrexia [Unknown]
  - Rhabdomyolysis [Unknown]
  - Malaise [Unknown]

NARRATIVE: CASE EVENT DATE: 20180219
